FAERS Safety Report 13378201 (Version 1)
Quarter: 2017Q1

REPORT INFORMATION
  Report Type: Spontaneous
  Country: SE (occurrence: SE)
  Receive Date: 20170328
  Receipt Date: 20170328
  Transmission Date: 20170429
  Serious: Yes (Other)
  Sender: FDA-Public Use
  Company Number: SE-B.I. PHARMACEUTICALS,INC./RIDGEFIELD-2017-37-000016

PATIENT
  Age: 71 Year
  Sex: Male

DRUGS (1)
  1. PERSANTINE [Suspect]
     Active Substance: DIPYRIDAMOLE
     Indication: PRODUCT USED FOR UNKNOWN INDICATION
     Dosage: 1X2
     Route: 048
     Dates: end: 201702

REACTIONS (2)
  - Scab [Not Recovered/Not Resolved]
  - Intestinal polyp [Unknown]

NARRATIVE: CASE EVENT DATE: 201612
